FAERS Safety Report 22111862 (Version 2)
Quarter: 2023Q1

REPORT INFORMATION
  Report Type: Report from Study
  Country: AU (occurrence: AU)
  Receive Date: 20230318
  Receipt Date: 20230323
  Transmission Date: 20230417
  Serious: Yes (Death)
  Sender: FDA-Public Use
  Company Number: AU-002147023-NVSC2023AU062395

PATIENT
  Age: 86 Year
  Sex: Male
  Weight: 65 kg

DRUGS (6)
  1. RYDAPT [Suspect]
     Active Substance: MIDOSTAURIN
     Indication: Systemic mastocytosis
     Dosage: 100 MG, BID
     Route: 048
     Dates: start: 20200114
  2. RYDAPT [Suspect]
     Active Substance: MIDOSTAURIN
     Dosage: 50 MG, BID (TABLET)
     Route: 048
     Dates: start: 20200114, end: 20210301
  3. RYDAPT [Suspect]
     Active Substance: MIDOSTAURIN
     Dosage: UNK, BID (50 MG MANE AND 75 MG NOCTE)
     Route: 048
  4. RYDAPT [Suspect]
     Active Substance: MIDOSTAURIN
     Dosage: 75 MG, BID
     Route: 048
  5. RYDAPT [Suspect]
     Active Substance: MIDOSTAURIN
     Dosage: 3 DOSAGE FORM, BID
     Route: 065
  6. RYDAPT [Suspect]
     Active Substance: MIDOSTAURIN
     Dosage: 50 MG, BID (50 MG MORNING AND 50 MG NIGHT)
     Route: 048

REACTIONS (1)
  - Death [Fatal]

NARRATIVE: CASE EVENT DATE: 20220714
